FAERS Safety Report 8023342-X (Version None)
Quarter: 2012Q1

REPORT INFORMATION
  Report Type: 
  Country: None (occurrence: None)
  Receive Date: 20120104
  Receipt Date: 20111222
  Transmission Date: 20120608
  Serious: Yes (Hospitalization, Disabling, Other)
  Sender: FDA-Public Use
  Company Number: GR-ROCHE-717791

PATIENT
  Age: 73 Year
  Sex: Female
  Weight: 54 kg

DRUGS (1)
  1. BONIVA [Suspect]
     Indication: OSTEOPOROSIS
     Dates: start: 20050101, end: 20090101

REACTIONS (12)
  - SPEECH DISORDER [None]
  - EPISTAXIS [None]
  - OSTEONECROSIS OF JAW [None]
  - SINUSITIS [None]
  - DEFORMITY [None]
  - MALNUTRITION [None]
  - DACRYOSTENOSIS ACQUIRED [None]
  - GASTRIC DISORDER [None]
  - WEIGHT DECREASED [None]
  - DEPRESSION [None]
  - RHINORRHOEA [None]
  - EMPYEMA [None]
